FAERS Safety Report 8507996-7 (Version None)
Quarter: 2012Q3

REPORT INFORMATION
  Report Type: 
  Country: None (occurrence: None)
  Receive Date: 20120713
  Receipt Date: 20120418
  Transmission Date: 20120928
  Serious: Yes (Other)
  Sender: FDA-Public Use
  Company Number: US-US-EMD SERONO, INC.-7119471

PATIENT
  Age: 28 Year
  Sex: Female

DRUGS (4)
  1. CABERGOLINE [Concomitant]
     Indication: HYPERPROLACTINAEMIA
  2. CABERGOLINE [Concomitant]
     Indication: PITUITARY TUMOUR BENIGN
  3. CHORIOGONADOTROPIN ALFA [Suspect]
     Indication: ASSISTED FERTILISATION
  4. FOLLISTIM [Concomitant]
     Indication: ASSISTED FERTILISATION

REACTIONS (5)
  - PREMATURE SEPARATION OF PLACENTA [None]
  - HYPERPROLACTINAEMIA [None]
  - TWIN PREGNANCY [None]
  - LIVE BIRTH [None]
  - CAESAREAN SECTION [None]
